FAERS Safety Report 18179606 (Version 5)
Quarter: 2020Q4

REPORT INFORMATION
  Report Type: Spontaneous
  Country: US (occurrence: US)
  Receive Date: 20200821
  Receipt Date: 20201020
  Transmission Date: 20210113
  Serious: No
  Sender: FDA-Public Use
  Company Number: US-PFIZER INC-2020318876

PATIENT
  Age: 12 Year
  Sex: Female
  Weight: 38.83 kg

DRUGS (1)
  1. GENOTROPIN [Suspect]
     Active Substance: SOMATROPIN
     Indication: TURNER^S SYNDROME
     Dosage: 1.8 MG, DAILY (ADMINISTERED BY CYCLES TO ARMS, BUTTOCKS, AND LEGS)
     Dates: start: 201902

REACTIONS (2)
  - Product storage error [Unknown]
  - Drug dose omission by device [Unknown]

NARRATIVE: CASE EVENT DATE: 202008
